FAERS Safety Report 6173985-3 (Version None)
Quarter: 2009Q2

REPORT INFORMATION
  Report Type: 
  Country: None (occurrence: None)
  Receive Date: 20090430
  Receipt Date: 20080707
  Transmission Date: 20091009
  Serious: No
  Sender: FDA-Public Use
  Company Number: US-ASTRAZENECA-2003UW01422

PATIENT
  Age: 79 Year
  Sex: Female
  Weight: 63.2 kg

DRUGS (6)
  1. NEXIUM [Suspect]
     Indication: GASTROOESOPHAGEAL REFLUX DISEASE
     Route: 048
  2. NEXIUM [Suspect]
     Dosage: 40 MG
     Route: 048
     Dates: start: 20080701
  3. LEVOTHROID [Concomitant]
  4. ATACAND [Concomitant]
  5. ASPIRIN [Concomitant]
  6. VALSARTAN [Concomitant]

REACTIONS (9)
  - ABDOMINAL DISCOMFORT [None]
  - CHEST PAIN [None]
  - DRUG INEFFECTIVE [None]
  - DYSPEPSIA [None]
  - GLOSSODYNIA [None]
  - NAUSEA [None]
  - ORAL DISCOMFORT [None]
  - PAIN IN EXTREMITY [None]
  - TINNITUS [None]
